FAERS Safety Report 15105270 (Version 2)
Quarter: 2018Q3

REPORT INFORMATION
  Report Type: Spontaneous
  Country: US (occurrence: US)
  Receive Date: 20180704
  Receipt Date: 20180810
  Transmission Date: 20181010
  Serious: No
  Sender: FDA-Public Use
  Company Number: US-ALK-ABELLO A/S-2018AA001754

PATIENT

DRUGS (1)
  1. ODACTRA [Suspect]
     Active Substance: DERMATOPHAGOIDES FARINAE\DERMATOPHAGOIDES PTERONYSSINUS
     Indication: PRODUCT USED FOR UNKNOWN INDICATION
     Dosage: 12 SQ?HDM
     Dates: start: 20180328, end: 20180411

REACTIONS (3)
  - Oral pruritus [Recovered/Resolved]
  - Oropharyngeal pain [Recovered/Resolved]
  - Lip swelling [Recovered/Resolved]
